FAERS Safety Report 8103051-9 (Version None)
Quarter: 2012Q1

REPORT INFORMATION
  Report Type: 
  Country: None (occurrence: None)
  Receive Date: 20120201
  Receipt Date: 20120128
  Transmission Date: 20120608
  Serious: No
  Sender: FDA-Public Use
  Company Number: US-BAYER-2012-009801

PATIENT

DRUGS (6)
  1. VICODIN [Concomitant]
  2. ALEVE (CAPLET) [Suspect]
     Indication: ANALGESIC THERAPY
     Route: 048
  3. ASPIRIN [Concomitant]
  4. RITALIN [Concomitant]
  5. ACETAMINOPHEN [Concomitant]
  6. ZITHROMAX [Concomitant]

REACTIONS (1)
  - DYSGEUSIA [None]
